FAERS Safety Report 6543154-3 (Version None)
Quarter: 2010Q1

REPORT INFORMATION
  Report Type: 
  Country: None (occurrence: None)
  Receive Date: 20100120
  Receipt Date: 20100111
  Transmission Date: 20100710
  Serious: Yes (Hospitalization)
  Sender: FDA-Public Use
  Company Number: SE-AMGEN-US385311

PATIENT
  Age: 56 Year
  Sex: Female

DRUGS (2)
  1. ENBREL [Suspect]
     Indication: RHEUMATOID ARTHRITIS
     Dosage: 50 MG WEEKLY
     Route: 058
     Dates: start: 19990525, end: 20090701
  2. DICLOFENAC SODIUM [Concomitant]

REACTIONS (2)
  - CYSTITIS HAEMORRHAGIC [None]
  - INFECTION SUSCEPTIBILITY INCREASED [None]
